FAERS Safety Report 7145956-1 (Version None)
Quarter: 2010Q4

REPORT INFORMATION
  Report Type: 
  Country: None (occurrence: None)
  Receive Date: 20101208
  Receipt Date: 20101124
  Transmission Date: 20110411
  Serious: Yes (Other)
  Sender: FDA-Public Use
  Company Number: JP-ROCHE-745419

PATIENT
  Age: 65 Year
  Sex: Female

DRUGS (5)
  1. AVASTIN [Suspect]
     Indication: COLON CANCER METASTATIC
     Dosage: NOTE: DOSAGE IS UNCERTAIN.
     Route: 041
  2. ELPLAT [Concomitant]
     Dosage: NOTE: DOSAGE IS UNCERTAIN.
     Route: 041
  3. 5-FU [Concomitant]
     Dosage: ROUTE: INTRAVENOUS BOLUS
     Route: 042
  4. 5-FU [Concomitant]
     Dosage: ROUTE: INTRAVENOUS DRIP, NOTE: DOSAGE IS UNCERTAIN.
     Route: 042
  5. LEVOFOLINATE [Concomitant]
     Dosage: NOTE: DOSAGE IS UNCERTAIN
     Route: 041

REACTIONS (3)
  - ILEUS [None]
  - INTESTINAL ISCHAEMIA [None]
  - LARGE INTESTINAL ULCER [None]
